FAERS Safety Report 23398983 (Version 1)
Quarter: 2024Q1

REPORT INFORMATION
  Report Type: Report from Study
  Country: US (occurrence: US)
  Receive Date: 20240112
  Receipt Date: 20240112
  Transmission Date: 20240410
  Serious: Yes (Death)
  Sender: FDA-Public Use
  Company Number: US-ABBVIE-5583713

PATIENT
  Sex: Male

DRUGS (30)
  1. VENCLEXTA [Suspect]
     Active Substance: VENETOCLAX
     Indication: Acute lymphocytic leukaemia recurrent
     Dosage: FORM STRENGTH: 100 MILLIGRAM
     Route: 048
  2. TRIAMCINOLONE [Concomitant]
     Active Substance: TRIAMCINOLONE
     Indication: Rash
     Dosage: FORM STRENGTH: 0.1 PERCENT?APPLY ON BODY SITE WHERE RASH IS PRESENT
  3. DOXORUBICIN [Concomitant]
     Active Substance: DOXORUBICIN
     Indication: Product used for unknown indication
     Dosage: FORM STRENGTH: 100 MILLIGRAM?INFUSE OVER 15 MINS
  4. MICAFUNGIN [Concomitant]
     Active Substance: MICAFUNGIN SODIUM
     Indication: Product used for unknown indication
     Dosage: EVERY MON, WED, FRI, INFUSE OVER 60 MINS
  5. LIDOCAINE [Concomitant]
     Active Substance: LIDOCAINE
     Indication: Pain
     Dosage: FORM STRENGTH: 4 PERCENT
  6. LIDOCAINE [Concomitant]
     Active Substance: LIDOCAINE
     Indication: Pain
     Dosage: PATCH/FILM?FORM STRENGTH: 5 PERCENT?APPLY TO BACK ,PRN
  7. PANTOPRAZOLE [Concomitant]
     Active Substance: PANTOPRAZOLE
     Indication: Product used for unknown indication
     Dosage: FORM STRENGTH: 40 MILLIGRAM
  8. SODIUM CHLORIDE [Concomitant]
     Active Substance: SODIUM CHLORIDE
     Indication: Product used for unknown indication
     Dosage: FORM STRENGTH: 0.9 PERCENT
  9. DIPHENHYDRAMINE [Concomitant]
     Active Substance: DIPHENHYDRAMINE
     Indication: Product used for unknown indication
     Dosage: FORM STRENGTH: 50 MILLIGRAM?PRN
  10. DEXAMETHASONE [Concomitant]
     Active Substance: DEXAMETHASONE
     Indication: Product used for unknown indication
     Dosage: FORM STRENGTH: 4 MILLIGRAM
  11. DEXAMETHASONE [Concomitant]
     Active Substance: DEXAMETHASONE
     Indication: Product used for unknown indication
     Dosage: FORM STRENGTH: 6 MILLIGRAM
  12. ONDANSETRON [Concomitant]
     Active Substance: ONDANSETRON
     Indication: Nausea
     Dosage: FORM STRENGTH: 8 MILLIGRAM
  13. ONDANSETRON [Concomitant]
     Active Substance: ONDANSETRON
     Indication: Nausea
     Dosage: FORM STRENGTH: 8 MILLIGRAM
     Dates: start: 20221220
  14. PREGABALIN [Concomitant]
     Active Substance: PREGABALIN
     Indication: Product used for unknown indication
     Dosage: FORM STRENGTH: 150 MILLIGRAM
  15. LISINOPRIL [Concomitant]
     Active Substance: LISINOPRIL
     Indication: Product used for unknown indication
     Dosage: FORM STRENGTH: 10 MILLIGRAM
  16. HEPARIN SODIUM [Concomitant]
     Active Substance: HEPARIN SODIUM
     Indication: Product used for unknown indication
     Dosage: STRENGTH 10 UNIT/ML INJECTION
  17. METRONIDAZOLE [Concomitant]
     Active Substance: METRONIDAZOLE
     Indication: Product used for unknown indication
     Dosage: TIME INTERVAL: 0.33333333 DAYS: FORM STRENGTH: 500 MILLIGRAM
  18. ACETAMINOPHEN [Concomitant]
     Active Substance: ACETAMINOPHEN
     Indication: Pain
     Dosage: FORM STRENGTH: 500 MILLIGRAM
  19. MELATONIN [Concomitant]
     Active Substance: MELATONIN
     Indication: Insomnia
     Dosage: FORM STRENGTH: 5 MILLIGRAM?DAYS, AT BEDTIME, PRN
  20. APREPITANT [Concomitant]
     Active Substance: APREPITANT
     Indication: Product used for unknown indication
     Dosage: FORM STRENGTH: 125 MILLIGRAM
  21. ALLOPURINOL [Concomitant]
     Active Substance: ALLOPURINOL
     Indication: Product used for unknown indication
     Dosage: TIME INTERVAL: 0.33333333 DAYS: FORM STRENGTH: 200 MILLIGRAM
  22. OXYCODONE [Concomitant]
     Active Substance: OXYCODONE
     Indication: Pain
     Dosage: FORM STRENGTH: 5 MILLIGRAM
  23. LORAZEPAM [Concomitant]
     Active Substance: LORAZEPAM
     Indication: Nausea
     Dosage: FORM STRENGTH: 1 MILLIGRAM
     Dates: start: 20221212
  24. HYDROXYZINE PAMOATE [Concomitant]
     Active Substance: HYDROXYZINE PAMOATE
     Indication: Pruritus
     Dosage: FORM STRENGTH: 25 MILLIGRAM
  25. PROMETHAZINE [Concomitant]
     Active Substance: PROMETHAZINE HYDROCHLORIDE
     Indication: Nausea
     Dosage: FORM STRENGTH: 25 MILLIGRAM?60ML/HR INFUSE OVER 10 MINS
  26. TUMS [Concomitant]
     Active Substance: CALCIUM CARBONATE
     Indication: Product used for unknown indication
     Dosage: TIME INTERVAL: 0.33333333 DAYS: FORM STRENGTH: 1500 MILLIGRAM
  27. HYDROCORTISONE [Concomitant]
     Active Substance: HYDROCORTISONE
     Indication: Product used for unknown indication
     Dosage: FORM STRENGTH: 75 MILLIGRAM
  28. HYDRALAZINE [Concomitant]
     Active Substance: HYDRALAZINE HYDROCHLORIDE
     Indication: Blood pressure systolic
     Dosage: FORM STRENGTH: 20 MILLIGRAM
  29. AVIBACTAM SODIUM\CEFTAZIDIME [Concomitant]
     Active Substance: AVIBACTAM SODIUM\CEFTAZIDIME
     Indication: Product used for unknown indication
     Dosage: FORM STRENGTH: 2.5 MILLIGRAM
  30. SULFAMETHOXAZOLE AND TRIMETHOPRIM [Concomitant]
     Active Substance: SULFAMETHOXAZOLE\TRIMETHOPRIM
     Indication: Product used for unknown indication
     Dosage: 2X DAYS SAT, SUN?STRENGTH - 800-160MG

REACTIONS (2)
  - Death [Fatal]
  - Off label use [Unknown]
